FAERS Safety Report 23083132 (Version 1)
Quarter: 2023Q4

REPORT INFORMATION
  Report Type: Spontaneous
  Country: US (occurrence: US)
  Receive Date: 20231019
  Receipt Date: 20231019
  Transmission Date: 20240110
  Serious: Yes (Other)
  Sender: FDA-Public Use
  Company Number: US-MYLANLABS-2023M1109500

PATIENT
  Age: 56 Year
  Sex: Female

DRUGS (6)
  1. ASCORBIC ACID [Suspect]
     Active Substance: ASCORBIC ACID
     Indication: Skin hyperpigmentation
     Dosage: UNK, CREAM (AS A PART OF COMPOUNDED CREAM)
     Route: 065
  2. HYDROQUINONE [Suspect]
     Active Substance: HYDROQUINONE
     Indication: Skin hyperpigmentation
     Dosage: UNK (AS A PART OF COMPOUNDED CREAM)
     Route: 065
  3. KOJIC ACID [Suspect]
     Active Substance: KOJIC ACID
     Indication: Skin hyperpigmentation
     Dosage: UNK (AS A PART OF COMPOUNDED CREAM)
     Route: 065
  4. NIACINAMIDE [Suspect]
     Active Substance: NIACINAMIDE
     Indication: Skin hyperpigmentation
     Dosage: UNK (AS A PART OF COMPOUNDED CREAM)
     Route: 065
  5. HERBALS\MITRAGYNINE [Concomitant]
     Active Substance: HERBALS\MITRAGYNINE
     Indication: Back pain
     Dosage: UNK UNK, QD  (4-5 DOSES)
     Route: 048
  6. HERBALS\MITRAGYNINE [Concomitant]
     Active Substance: HERBALS\MITRAGYNINE
     Dosage: UNK (DOSE REDUCED)
     Route: 065

REACTIONS (1)
  - Drug ineffective [Unknown]
